FAERS Safety Report 17422476 (Version 6)
Quarter: 2021Q1

REPORT INFORMATION
  Report Type: Report from Study
  Country: DE (occurrence: DE)
  Receive Date: 20200215
  Receipt Date: 20210302
  Transmission Date: 20210419
  Serious: Yes (Hospitalization, Other)
  Sender: FDA-Public Use
  Company Number: DE-SUN PHARMACEUTICAL INDUSTRIES LTD-2020RR-236633

PATIENT
  Age: 51 Year
  Sex: Female

DRUGS (2)
  1. INFECTCORTISEPT [Concomitant]
     Indication: BASAL CELL CARCINOMA
     Dosage: UNK
     Route: 050
     Dates: start: 20201217
  2. ODOMZO [Suspect]
     Active Substance: SONIDEGIB
     Indication: BASAL CELL CARCINOMA
     Dosage: 200 MILLIGRAMS, DAILY
     Route: 048
     Dates: start: 20181115

REACTIONS (4)
  - Bone pain [Not Recovered/Not Resolved]
  - Basal cell carcinoma [Recovered/Resolved]
  - Maculopathy [Recovered/Resolved]
  - Muscle spasms [Not Recovered/Not Resolved]
